FAERS Safety Report 21164009 (Version 2)
Quarter: 2022Q4

REPORT INFORMATION
  Report Type: Report from Study
  Country: US (occurrence: US)
  Receive Date: 20220803
  Receipt Date: 20221010
  Transmission Date: 20230113
  Serious: Yes (Other)
  Sender: FDA-Public Use
  Company Number: US-NOVARTISTESTPH-NVSC2022US169852

PATIENT
  Sex: Female

DRUGS (5)
  1. KESIMPTA [Suspect]
     Active Substance: OFATUMUMAB
     Indication: Relapsing multiple sclerosis
     Dosage: 20 MG, QMO
     Route: 058
     Dates: start: 20210519
  2. TYSABRI [Suspect]
     Active Substance: NATALIZUMAB
     Indication: Product used for unknown indication
     Dosage: UNK (EVERY 4 WEEKS OR 28 DAYS)
     Route: 065
     Dates: start: 202011
  3. PROVIGIL [Concomitant]
     Active Substance: MODAFINIL
     Indication: Product used for unknown indication
     Dosage: 1 DOSAGE FORM, QD (1 TABLET BY MOUTH)
     Route: 065
  4. IBUPROFEN [Concomitant]
     Active Substance: IBUPROFEN
     Indication: Product used for unknown indication
     Dosage: UNK, PRN
     Route: 065
  5. TYLENOL EXTRA STRENGTH [Concomitant]
     Active Substance: ACETAMINOPHEN
     Indication: Product used for unknown indication
     Dosage: UNK, PRN
     Route: 065

REACTIONS (33)
  - Multiple sclerosis [Unknown]
  - Deafness [Unknown]
  - Blindness [Recovering/Resolving]
  - Fatigue [Recovering/Resolving]
  - Hypoaesthesia [Recovering/Resolving]
  - Muscle spasms [Recovering/Resolving]
  - Gastric disorder [Unknown]
  - Pain [Recovering/Resolving]
  - Anxiety [Recovering/Resolving]
  - Depression [Unknown]
  - Muscular weakness [Recovering/Resolving]
  - Dizziness [Recovering/Resolving]
  - Diplopia [Unknown]
  - Vision blurred [Recovering/Resolving]
  - Temperature intolerance [Recovering/Resolving]
  - Memory impairment [Unknown]
  - Balance disorder [Recovering/Resolving]
  - Neuralgia [Unknown]
  - Tinnitus [Unknown]
  - Dyspepsia [Unknown]
  - Arthralgia [Unknown]
  - Snoring [Unknown]
  - Asthenia [Unknown]
  - Feeling abnormal [Unknown]
  - Cognitive disorder [Unknown]
  - Emotional distress [Unknown]
  - Spinal pain [Unknown]
  - Sexual dysfunction [Unknown]
  - Dysphagia [Unknown]
  - Nausea [Unknown]
  - Weight increased [Unknown]
  - Sinusitis [Unknown]
  - Urinary tract infection [Unknown]
